FAERS Safety Report 24667865 (Version 1)
Quarter: 2024Q4

REPORT INFORMATION
  Report Type: Spontaneous
  Country: JP (occurrence: JP)
  Receive Date: 20241127
  Receipt Date: 20241127
  Transmission Date: 20250114
  Serious: Yes (Death)
  Sender: SANDOZ
  Company Number: JP-asahikaseip-2024-AER-06534

PATIENT
  Age: 90 Year
  Sex: Male

DRUGS (1)
  1. RECLAST [Suspect]
     Active Substance: ZOLEDRONIC ACID
     Indication: Product used for unknown indication
     Dosage: 5 MG, QD
     Route: 041
     Dates: start: 20240521, end: 20240521

REACTIONS (1)
  - Pneumonia aspiration [Fatal]
